FAERS Safety Report 7057114-X (Version None)
Quarter: 2010Q4

REPORT INFORMATION
  Report Type: 
  Country: None (occurrence: None)
  Receive Date: 20101022
  Receipt Date: 20101013
  Transmission Date: 20110411
  Serious: Yes (Hospitalization, Other)
  Sender: FDA-Public Use
  Company Number: US-BAYER-200830742NA

PATIENT
  Age: 44 Year
  Sex: Female
  Weight: 100 kg

DRUGS (3)
  1. BETASERON [Suspect]
     Indication: RELAPSING-REMITTING MULTIPLE SCLEROSIS
     Dosage: TOTAL DAILY DOSE: 8 MIU
     Route: 058
     Dates: end: 20100915
  2. BETASERON [Suspect]
     Dosage: TOTAL DAILY DOSE: 8 MIU
     Route: 058
     Dates: start: 20010501
  3. DOXEPIN HCL [Concomitant]
     Indication: URTICARIA CHRONIC
     Dosage: TOTAL DAILY DOSE: 10 MG
     Dates: start: 20040801

REACTIONS (8)
  - BACK PAIN [None]
  - BASEDOW'S DISEASE [None]
  - INTERVERTEBRAL DISC PROTRUSION [None]
  - MEDICAL DEVICE COMPLICATION [None]
  - PYREXIA [None]
  - THYROXINE FREE INCREASED [None]
  - THYROXINE INCREASED [None]
  - TRI-IODOTHYRONINE DECREASED [None]
